FAERS Safety Report 10031340 (Version 2)
Quarter: 2014Q1

REPORT INFORMATION
  Report Type: Spontaneous
  Country: JP (occurrence: JP)
  Receive Date: 20140324
  Receipt Date: 20140328
  Transmission Date: 20141002
  Serious: Yes (Other)
  Sender: FDA-Public Use
  Company Number: JP-009507513-1403JPN009354

PATIENT
  Age: 53 Year
  Sex: Female

DRUGS (36)
  1. TEMODAL [Suspect]
     Indication: ANAPLASTIC ASTROCYTOMA
     Dosage: 200 MG/M2, QD
     Route: 048
  2. TEMODAL [Suspect]
     Dosage: UNK
     Route: 048
  3. TEMODAL [Suspect]
     Dosage: UNK
     Route: 048
  4. TEMODAL [Suspect]
     Dosage: UNK
     Route: 048
  5. TEMODAL [Suspect]
     Dosage: UNK
     Route: 048
  6. TEMODAL [Suspect]
     Dosage: UNK
     Route: 048
  7. TEMODAL [Suspect]
     Dosage: UNK
     Route: 048
  8. TEMODAL [Suspect]
     Dosage: UNK
     Route: 048
  9. TEMODAL [Suspect]
     Dosage: UNK
     Route: 048
  10. TEMODAL [Suspect]
     Dosage: UNK
     Route: 048
  11. TEMODAL [Suspect]
     Dosage: UNK
     Route: 048
  12. TEMODAL [Suspect]
     Dosage: UNK
     Route: 048
  13. TEMODAL [Suspect]
     Dosage: UNK
     Route: 048
  14. TEMODAL [Suspect]
     Dosage: UNK
     Route: 048
  15. TEMODAL [Suspect]
     Dosage: UNK
     Route: 048
  16. TEMODAL [Suspect]
     Dosage: UNK
     Route: 048
  17. TEMODAL [Suspect]
     Dosage: UNK
     Route: 048
  18. TEMODAL [Suspect]
     Dosage: UNK
     Route: 048
  19. TEMODAL [Suspect]
     Dosage: UNK
     Route: 048
  20. TEMODAL [Suspect]
     Dosage: UNK
     Route: 048
  21. TEMODAL [Suspect]
     Dosage: UNK
     Route: 048
  22. TEMODAL [Suspect]
     Dosage: UNK
     Route: 048
  23. TEMODAL [Suspect]
     Dosage: UNK
     Route: 048
  24. TEMODAL [Suspect]
     Dosage: UNK
     Route: 048
  25. TEMODAL [Suspect]
     Dosage: UNK
     Route: 048
  26. TEMODAL [Suspect]
     Dosage: UNK
     Route: 048
  27. TEMODAL [Suspect]
     Dosage: UNK
     Route: 048
  28. TEMODAL [Suspect]
     Dosage: UNK
     Route: 048
  29. TEMODAL [Suspect]
     Dosage: UNK
     Route: 048
  30. TEMODAL [Suspect]
     Dosage: UNK
     Route: 048
  31. TEMODAL [Suspect]
     Dosage: UNK
     Route: 048
  32. TEMODAL [Suspect]
     Dosage: UNK
     Route: 048
  33. TEMODAL [Suspect]
     Dosage: UNK
     Route: 048
  34. TEMODAL [Suspect]
     Dosage: UNK
     Route: 048
  35. TEMODAL [Suspect]
     Dosage: UNK
     Route: 048
  36. TEMODAL [Suspect]
     Dosage: UNK
     Route: 048

REACTIONS (1)
  - Leukoencephalopathy [Not Recovered/Not Resolved]
